FAERS Safety Report 19932814 (Version 1)
Quarter: 2021Q4

REPORT INFORMATION
  Report Type: Spontaneous
  Country: US (occurrence: US)
  Receive Date: 20211007
  Receipt Date: 20211007
  Transmission Date: 20220303
  Serious: Yes (Hospitalization)
  Sender: FDA-Public Use
  Company Number: None

PATIENT
  Age: 24 Year
  Sex: Male
  Weight: 83 kg

DRUGS (2)
  1. SIROLIMUS [Suspect]
     Active Substance: SIROLIMUS
     Route: 048
     Dates: start: 20210602
  2. LOSARTAN [Suspect]
     Active Substance: LOSARTAN
     Route: 048

REACTIONS (5)
  - Hyperbilirubinaemia [None]
  - Muscle strain [None]
  - Blood creatine phosphokinase increased [None]
  - Blood creatinine increased [None]
  - Blood lactate dehydrogenase increased [None]

NARRATIVE: CASE EVENT DATE: 20210621
